FAERS Safety Report 5305842-6 (Version None)
Quarter: 2007Q2

REPORT INFORMATION
  Report Type: 
  Country: None (occurrence: None)
  Receive Date: 20070420
  Receipt Date: 20070420
  Transmission Date: 20071010
  Serious: Yes (Death)
  Sender: FDA-Public Use
  Company Number: None

PATIENT
  Age: 34 Year
  Sex: Female
  Weight: 73.3 kg

DRUGS (3)
  1. TRUVADA [Suspect]
     Indication: HIV INFECTION
     Dosage: 1 TABLET QD ORAL
     Route: 048
     Dates: start: 20030220, end: 20070313
  2. NEVIRAPINE [Suspect]
     Indication: HIV INFECTION
     Dosage: 200MG BID ORAL
     Route: 048
     Dates: start: 20070220, end: 20070313
  3. VITAMIN B COMPLEX CAP [Concomitant]

REACTIONS (4)
  - HAEMATOCRIT DECREASED [None]
  - IMMUNE RECONSTITUTION SYNDROME [None]
  - MENINGITIS TUBERCULOUS [None]
  - WEIGHT DECREASED [None]
